FAERS Safety Report 22219551 (Version 1)
Quarter: 2023Q2

REPORT INFORMATION
  Report Type: Spontaneous
  Country: US (occurrence: US)
  Receive Date: 20230417
  Receipt Date: 20230417
  Transmission Date: 20230721
  Serious: No
  Sender: FDA-Public Use
  Company Number: US-ELI_LILLY_AND_COMPANY-US202304007223

PATIENT
  Sex: Female

DRUGS (4)
  1. VERZENIO [Suspect]
     Active Substance: ABEMACICLIB
     Indication: Breast cancer
     Dosage: UNK, UNKNOWN
     Route: 065
  2. TAMOXIFEN [Concomitant]
     Active Substance: TAMOXIFEN
     Indication: Breast cancer
     Dosage: UNK
  3. ZOLADEX [Concomitant]
     Active Substance: GOSERELIN ACETATE
     Indication: Product used for unknown indication
     Dosage: UNK
  4. ZOMETA [Concomitant]
     Active Substance: ZOLEDRONIC ACID
     Indication: Product used for unknown indication
     Dosage: UNK, UNKNOWN
     Dates: start: 20221214

REACTIONS (1)
  - Hot flush [Recovered/Resolved]
